FAERS Safety Report 7386767-1 (Version None)
Quarter: 2011Q1

REPORT INFORMATION
  Report Type: 
  Country: None (occurrence: None)
  Receive Date: 20110331
  Receipt Date: 20110322
  Transmission Date: 20110831
  Serious: Yes (Hospitalization)
  Sender: FDA-Public Use
  Company Number: AU-ASTRAZENECA-2011SE16482

PATIENT
  Age: 52 Year
  Sex: Female

DRUGS (7)
  1. PROPOFOL [Suspect]
     Route: 042
  2. INDAPAMIDE HEMIHYDRATE [Concomitant]
  3. ALFENTANIL HYDROCHLORIDE [Suspect]
  4. PERINDOPRIL ERBUMINE [Concomitant]
  5. SUCCINYLCHOLINE CHLORIDE [Suspect]
     Dates: start: 20110122
  6. FELODIPINE [Concomitant]
  7. SIMVASTATIN [Concomitant]

REACTIONS (2)
  - ANAPHYLACTIC SHOCK [None]
  - BRONCHOSPASM [None]
